FAERS Safety Report 7455493-2 (Version None)
Quarter: 2011Q2

REPORT INFORMATION
  Report Type: 
  Country: None (occurrence: None)
  Receive Date: 20110503
  Receipt Date: 20110428
  Transmission Date: 20111010
  Serious: Yes (Other)
  Sender: FDA-Public Use
  Company Number: US-ABBOTT-11P-163-0722545-00

PATIENT
  Sex: Female
  Weight: 167.98 kg

DRUGS (12)
  1. METHOTREXATE [Concomitant]
     Indication: RHEUMATOID ARTHRITIS
  2. ALLEGRA [Concomitant]
     Indication: HYPERSENSITIVITY
  3. FOLIC ACID [Concomitant]
     Indication: VITAMIN SUPPLEMENTATION
  4. HUMIRA [Suspect]
     Dates: start: 20060101, end: 20100701
  5. PREVACID [Concomitant]
     Indication: GASTROOESOPHAGEAL REFLUX DISEASE
  6. HUMIRA [Suspect]
     Indication: RHEUMATOID ARTHRITIS
     Dates: start: 20100901
  7. LISINOPRIL [Concomitant]
     Indication: HYPERTENSION
  8. HUMIRA [Suspect]
     Dates: start: 20060101, end: 20060101
  9. HYDROCHLOROTHIAZIDE [Concomitant]
     Indication: HYPERTENSION
  10. OSCAL-D [Concomitant]
     Indication: MINERAL SUPPLEMENTATION
  11. FISH OIL [Concomitant]
     Indication: SUPPLEMENTATION THERAPY
  12. FOSTEUM [Concomitant]
     Indication: MEDICAL DIET

REACTIONS (3)
  - JOINT RANGE OF MOTION DECREASED [None]
  - ARTHRALGIA [None]
  - INJECTION SITE PAIN [None]
